FAERS Safety Report 7182547-0 (Version None)
Quarter: 2010Q4

REPORT INFORMATION
  Report Type: 
  Country: None (occurrence: None)
  Receive Date: 20101221
  Receipt Date: 20100515
  Transmission Date: 20110411
  Serious: No
  Sender: FDA-Public Use
  Company Number: US-AMGEN-KDL412780

PATIENT

DRUGS (1)
  1. ENBREL [Suspect]
     Indication: RHEUMATOID ARTHRITIS
     Dosage: 50 MG, QWK
     Route: 058

REACTIONS (8)
  - ANAEMIA [None]
  - BLOOD PRESSURE INCREASED [None]
  - BRONCHITIS [None]
  - EXOSTOSIS [None]
  - FATIGUE [None]
  - RESPIRATORY TRACT INFECTION [None]
  - SINUSITIS [None]
  - TOOTH INFECTION [None]
